FAERS Safety Report 7240125-9 (Version None)
Quarter: 2011Q1

REPORT INFORMATION
  Report Type: 
  Country: None (occurrence: None)
  Receive Date: 20110124
  Receipt Date: 20101217
  Transmission Date: 20110831
  Serious: Yes (Hospitalization, Other)
  Sender: FDA-Public Use
  Company Number: US-BAYER-201036993NA

PATIENT
  Sex: Female
  Weight: 91.61 kg

DRUGS (6)
  1. OCELLA [Suspect]
     Indication: CONTRACEPTION
     Dosage: UNK
     Dates: start: 20080701, end: 20100401
  2. YASMIN [Suspect]
     Indication: CONTRACEPTION
     Dosage: UNK
     Dates: start: 20060601, end: 20070901
  3. YASMIN [Suspect]
     Indication: ACNE
     Dosage: UNK
     Dates: start: 20080101, end: 20080701
  4. YAZ [Suspect]
     Indication: ACNE
  5. YAZ [Suspect]
     Indication: CONTRACEPTION
     Dosage: UNK
     Dates: start: 20070901, end: 20080101
  6. OCELLA [Suspect]
     Indication: ACNE

REACTIONS (3)
  - VISUAL IMPAIRMENT [None]
  - HEADACHE [None]
  - CEREBROVASCULAR ACCIDENT [None]
